FAERS Safety Report 8417984-7 (Version None)
Quarter: 2012Q2

REPORT INFORMATION
  Report Type: 
  Country: None (occurrence: None)
  Receive Date: 20120531
  Receipt Date: 20120517
  Transmission Date: 20120825
  Serious: Yes (Death)
  Sender: FDA-Public Use
  Company Number: 1292154

PATIENT
  Age: 83 Year
  Sex: Female
  Weight: 113 kg

DRUGS (9)
  1. MORPHINE SULFATE [Suspect]
     Indication: ARTHRALGIA
     Dosage: 4MG, ONCE, INTRAVENOUS (NOT OTHERWISE SPECIFIED), 4MG, ONCE INTRAVENOUS (NOT OTHERWISE SPECIFIED)
     Route: 042
     Dates: start: 20111025, end: 20111025
  2. MORPHINE SULFATE [Suspect]
     Indication: ARTHRALGIA
     Dosage: 4MG, ONCE, INTRAVENOUS (NOT OTHERWISE SPECIFIED), 4MG, ONCE INTRAVENOUS (NOT OTHERWISE SPECIFIED)
     Route: 042
     Dates: start: 20111025, end: 20111025
  3. MULTI-VITAMINS [Concomitant]
  4. PANTOPRAZOLE [Concomitant]
  5. ASPIRIN [Concomitant]
  6. LORAZEPAM [Concomitant]
  7. (CHOLECALCIFEROL) [Concomitant]
  8. DILTIAZEM [Concomitant]
  9. QUINAPRIL [Concomitant]

REACTIONS (14)
  - NAUSEA [None]
  - DYSPNOEA [None]
  - BLOOD PRESSURE INCREASED [None]
  - SKIN DISCOLOURATION [None]
  - CARDIAC DISORDER [None]
  - TREMOR [None]
  - HYPERHIDROSIS [None]
  - RESPIRATORY DISTRESS [None]
  - CHEST PAIN [None]
  - FOAMING AT MOUTH [None]
  - ABNORMAL BEHAVIOUR [None]
  - VOMITING [None]
  - HEART RATE DECREASED [None]
  - MALAISE [None]
